FAERS Safety Report 7053770-0 (Version None)
Quarter: 2010Q4

REPORT INFORMATION
  Report Type: 
  Country: None (occurrence: None)
  Receive Date: 20101020
  Receipt Date: 20101018
  Transmission Date: 20110411
  Serious: Yes (Death, Life-Threatening, Hospitalization)
  Sender: FDA-Public Use
  Company Number: B0424074A

PATIENT
  Sex: Female
  Weight: 52 kg

DRUGS (1)
  1. GW786034 [Suspect]
     Indication: SARCOMA
     Dosage: 800MG PER DAY
     Route: 048
     Dates: start: 20060403

REACTIONS (3)
  - DYSPNOEA [None]
  - LUNG DISORDER [None]
  - RESPIRATORY FAILURE [None]
